FAERS Safety Report 14584697 (Version 2)
Quarter: 2018Q2

REPORT INFORMATION
  Report Type: Spontaneous
  Country: IL (occurrence: IL)
  Receive Date: 20180301
  Receipt Date: 20180412
  Transmission Date: 20180711
  Serious: Yes (Other)
  Sender: FDA-Public Use
  Company Number: IL-SUN PHARMACEUTICAL INDUSTRIES LTD-2018RR-164703

PATIENT
  Age: 69 Year
  Sex: Male

DRUGS (21)
  1. PARACETAMOL [Suspect]
     Active Substance: ACETAMINOPHEN
     Indication: BACK PAIN
     Route: 065
  2. METAMIZOLE [Suspect]
     Active Substance: METAMIZOLE
     Indication: BACK PAIN
     Route: 065
  3. CODEINE [Suspect]
     Active Substance: CODEINE
     Indication: SPINAL OSTEOARTHRITIS
  4. CELECOXIB. [Suspect]
     Active Substance: CELECOXIB
     Indication: OSTEOARTHRITIS
  5. TRAMADOL. [Suspect]
     Active Substance: TRAMADOL
     Indication: OSTEOARTHRITIS
  6. TRAMADOL. [Suspect]
     Active Substance: TRAMADOL
     Indication: SPINAL OSTEOARTHRITIS
  7. METAMIZOLE [Suspect]
     Active Substance: METAMIZOLE
     Indication: SPINAL OSTEOARTHRITIS
  8. OXYCODONE [Suspect]
     Active Substance: OXYCODONE
     Indication: BACK PAIN
     Dosage: 5 MG, DAILY, DOSE INCREASED UP TO 5 MG X 2/DAY; THEN WAS INCREASED TO 10 MG X2/DAY
     Route: 065
  9. PREGABALIN. [Suspect]
     Active Substance: PREGABALIN
     Indication: BACK PAIN
  10. CELECOXIB. [Suspect]
     Active Substance: CELECOXIB
     Indication: BACK PAIN
  11. PARACETAMOL [Suspect]
     Active Substance: ACETAMINOPHEN
     Indication: OSTEOARTHRITIS
  12. TRAMADOL. [Suspect]
     Active Substance: TRAMADOL
     Indication: BACK PAIN
     Route: 065
  13. OXYCODONE [Suspect]
     Active Substance: OXYCODONE
     Indication: SPINAL OSTEOARTHRITIS
  14. METAMIZOLE [Suspect]
     Active Substance: METAMIZOLE
     Indication: OSTEOARTHRITIS
  15. PREGABALIN. [Suspect]
     Active Substance: PREGABALIN
     Indication: OSTEOARTHRITIS
     Dosage: 75 MG, BID
     Route: 065
  16. PREGABALIN. [Suspect]
     Active Substance: PREGABALIN
     Indication: SPINAL OSTEOARTHRITIS
  17. CODEINE [Suspect]
     Active Substance: CODEINE
     Indication: OSTEOARTHRITIS
  18. CELECOXIB. [Suspect]
     Active Substance: CELECOXIB
     Indication: SPINAL OSTEOARTHRITIS
     Route: 065
  19. CODEINE [Suspect]
     Active Substance: CODEINE
     Indication: BACK PAIN
     Route: 065
  20. PARACETAMOL [Suspect]
     Active Substance: ACETAMINOPHEN
     Indication: SPINAL OSTEOARTHRITIS
  21. OXYCODONE [Suspect]
     Active Substance: OXYCODONE
     Indication: OSTEOARTHRITIS

REACTIONS (3)
  - Drug tolerance [Unknown]
  - Drug effect incomplete [Unknown]
  - Constipation [Unknown]
